FAERS Safety Report 5558176-9 (Version None)
Quarter: 2007Q4

REPORT INFORMATION
  Report Type: 
  Country: None (occurrence: None)
  Receive Date: 20071214
  Receipt Date: 20071203
  Transmission Date: 20080405
  Serious: Yes (Life-Threatening)
  Sender: FDA-Public Use
  Company Number: US-GENENTECH-252515

PATIENT
  Sex: Female

DRUGS (4)
  1. BEVACIZUMAB [Suspect]
     Indication: RECTAL CANCER
     Dosage: 5 MG/KG, Q2W
     Route: 042
     Dates: start: 20071017
  2. CAPECITABINE [Suspect]
     Indication: RECTAL CANCER
     Dosage: 825 MG/M2, BID/M-F
     Route: 048
     Dates: start: 20071016
  3. OXALIPLATIN [Suspect]
     Indication: RECTAL CANCER
     Dosage: 50 MG/M2, 1/WEEK
     Route: 042
     Dates: start: 20071017
  4. RADIOTHERAPY [Concomitant]
     Indication: RECTAL CANCER
     Dosage: 50.4 GY, 5/WEEK

REACTIONS (3)
  - ABDOMINAL PAIN [None]
  - ENTERITIS [None]
  - ILEUS [None]
